FAERS Safety Report 4728549-2 (Version None)
Quarter: 2005Q3

REPORT INFORMATION
  Report Type: 
  Country: None (occurrence: None)
  Receive Date: 20050729
  Receipt Date: 20050720
  Transmission Date: 20060218
  Serious: Yes (Death)
  Sender: FDA-Public Use
  Company Number: US-JNJFOC-20050704740

PATIENT
  Age: 70 Year
  Sex: Male

DRUGS (1)
  1. DURAGESIC-100 [Suspect]
     Indication: CANCER PAIN
     Route: 062

REACTIONS (2)
  - MALIGNANT NEOPLASM PROGRESSION [None]
  - PANCREATIC CARCINOMA [None]
